FAERS Safety Report 10552761 (Version 2)
Quarter: 2015Q2

REPORT INFORMATION
  Report Type: Spontaneous
  Country: US (occurrence: US)
  Receive Date: 20141029
  Receipt Date: 20150417
  Transmission Date: 20150821
  Serious: Yes (Other)
  Sender: FDA-Public Use
  Company Number: US-TEVA-518347USA

PATIENT
  Sex: Female

DRUGS (4)
  1. TYSABRI [Suspect]
     Active Substance: NATALIZUMAB
     Route: 065
  2. TECFIDERA [Suspect]
     Active Substance: DIMETHYL FUMARATE
     Route: 065
  3. COPAXONE [Suspect]
     Active Substance: GLATIRAMER ACETATE
     Route: 065
  4. BETASERON [Suspect]
     Active Substance: INTERFERON BETA-1B
     Route: 065

REACTIONS (6)
  - Vomiting [Unknown]
  - Hepatic enzyme increased [Recovered/Resolved]
  - Adverse event [Unknown]
  - Drug ineffective [Unknown]
  - JC virus infection [Unknown]
  - Alopecia [Unknown]
